FAERS Safety Report 5449119-7 (Version None)
Quarter: 2007Q3

REPORT INFORMATION
  Report Type: 
  Country: None (occurrence: None)
  Receive Date: 20070911
  Receipt Date: 20070829
  Transmission Date: 20080115
  Serious: Yes (Hospitalization, Other)
  Sender: FDA-Public Use
  Company Number: US-PURDUE-USA_2007_0027554

PATIENT
  Age: 88 Year
  Sex: Female
  Weight: 48 kg

DRUGS (8)
  1. OXYCODONE HCL [Suspect]
     Indication: PAIN
     Dosage: UNK, UNK
  2. FOSAMAX [Concomitant]
  3. STOOL SOFTENER [Concomitant]
  4. DULCOLAX [Concomitant]
  5. TYLENOL (CAPLET) [Concomitant]
  6. VALSARTAN [Concomitant]
  7. LASIX [Concomitant]
  8. OXYCONTIN [Suspect]
     Indication: PAIN
     Dates: start: 20060619, end: 20070401

REACTIONS (6)
  - CONSTIPATION [None]
  - DYSPHAGIA [None]
  - LARGE INTESTINE PERFORATION [None]
  - MALNUTRITION [None]
  - PLEURAL EFFUSION [None]
  - WEIGHT DECREASED [None]
